FAERS Safety Report 7040845-5 (Version None)
Quarter: 2010Q3

REPORT INFORMATION
  Report Type: 
  Country: None (occurrence: None)
  Receive Date: 20100929
  Receipt Date: 20100824
  Transmission Date: 20110219
  Serious: No
  Sender: FDA-Public Use
  Company Number: US-WYE-H17161610

PATIENT
  Age: 61 Year
  Sex: Female
  Weight: 99.88 kg

DRUGS (3)
  1. PRISTIQ [Suspect]
     Indication: DEPRESSION
     Dosage: 50 MG 1X PER 1 DAY, ORAL
     Route: 048
     Dates: start: 20100817
  2. LISINOPRIL [Concomitant]
  3. NEXIUM [Concomitant]

REACTIONS (1)
  - DRUG INEFFECTIVE [None]
